FAERS Safety Report 7980657-9 (Version None)
Quarter: 2011Q4

REPORT INFORMATION
  Report Type: 
  Country: None (occurrence: None)
  Receive Date: 20111214
  Receipt Date: 20111206
  Transmission Date: 20120403
  Serious: Yes (Death, Hospitalization)
  Sender: FDA-Public Use
  Company Number: JP-PFIZER INC-2011230529

PATIENT
  Age: 82 Year
  Sex: Male
  Weight: 46.4 kg

DRUGS (14)
  1. LAXOBERON [Concomitant]
     Indication: CONSTIPATION
  2. RISUMIC [Concomitant]
     Dosage: 5 MG, 2X/DAY
     Route: 048
  3. PURSENNIDE [Concomitant]
     Dosage: 12 MG, 1X/DAY
     Route: 048
  4. DIART [Concomitant]
     Dosage: 30 MG, 1X/DAY
     Route: 048
  5. WARFARIN [Concomitant]
     Dosage: 2.5 MG, 1X/DAY
     Route: 048
  6. MAGMITT [Concomitant]
     Dosage: 330 MG, 3X/DAY
     Route: 048
  7. EPLERENONE [Concomitant]
     Dosage: 50 MG, 1X/DAY
     Route: 048
  8. DAI-KENCHU-TO [Concomitant]
     Dosage: 5 G, 3X/DAY
     Route: 048
  9. PANTOSIN [Concomitant]
     Dosage: 0.67 G, 3X/DAY
     Route: 048
  10. CEFAZOLIN SODIUM [Concomitant]
     Dosage: 1 G, 3X/DAY
     Route: 048
  11. TEMSIROLIMUS [Suspect]
     Indication: METASTATIC RENAL CELL CARCINOMA
     Dosage: 25 MG, WEEKLY
     Route: 042
     Dates: start: 20110914, end: 20110920
  12. POLARAMINE [Concomitant]
     Indication: PROPHYLAXIS
     Dosage: 5 MG, 1X/DAY
     Route: 041
  13. ASPIRIN [Concomitant]
     Dosage: 100 MG, 1X/DAY
     Route: 048
  14. TAMSULOSIN HCL [Concomitant]
     Dosage: 0.2 MG, 1X/DAY
     Route: 048

REACTIONS (2)
  - PNEUMONIA BACTERIAL [None]
  - EMPHYSEMA [None]
